FAERS Safety Report 11249799 (Version 1)
Quarter: 2015Q3

REPORT INFORMATION
  Report Type: Spontaneous
  Country: US (occurrence: US)
  Receive Date: 20150708
  Receipt Date: 20150708
  Transmission Date: 20151125
  Serious: Yes (Hospitalization)
  Sender: FDA-Public Use
  Company Number: US-ELI_LILLY_AND_COMPANY-US201005006466

PATIENT
  Age: 62 Year
  Sex: Male
  Weight: 95.24 kg

DRUGS (4)
  1. ANTIEMETICS AND ANTINAUSEANTS [Concomitant]
     Active Substance: UNSPECIFIED INGREDIENT
  2. HYDROCHLOROTHIAZIDE. [Concomitant]
     Active Substance: HYDROCHLOROTHIAZIDE
  3. OMEPRAZOL [Concomitant]
     Active Substance: OMEPRAZOLE
  4. GEMZAR [Suspect]
     Active Substance: GEMCITABINE HYDROCHLORIDE
     Indication: PANCREATIC CARCINOMA
     Dosage: 2000 MG, OTHER
     Dates: start: 20100208, end: 20100517

REACTIONS (4)
  - Protein total decreased [Recovered/Resolved]
  - Oedema peripheral [Recovering/Resolving]
  - Toxicity to various agents [Unknown]
  - Cellulitis [Recovering/Resolving]

NARRATIVE: CASE EVENT DATE: 201003
